FAERS Safety Report 17198912 (Version 4)
Quarter: 2021Q3

REPORT INFORMATION
  Report Type: Spontaneous
  Country: JP (occurrence: JP)
  Receive Date: 20191225
  Receipt Date: 20210811
  Transmission Date: 20211014
  Serious: Yes (Hospitalization, Other)
  Sender: FDA-Public Use
  Company Number: NVSJ2019JP005857

PATIENT
  Sex: Male

DRUGS (2)
  1. CLOMIFENE [Concomitant]
     Active Substance: CLOMIPHENE
     Indication: FOETAL EXPOSURE DURING PREGNANCY
     Dosage: UNK
     Route: 064
  2. CYCLOSPORINE. [Suspect]
     Active Substance: CYCLOSPORINE
     Indication: FOETAL EXPOSURE DURING PREGNANCY
     Dosage: MATERNAL DOSE: 100 MG/DAY
     Route: 064

REACTIONS (13)
  - Ventricular septal defect [Unknown]
  - Low birth weight baby [Unknown]
  - Trisomy 18 [Unknown]
  - Foetal exposure during pregnancy [Unknown]
  - Multiple congenital abnormalities [Unknown]
  - Cystic lymphangioma [Unknown]
  - Cyst [Unknown]
  - Cerebellar hypoplasia [Unknown]
  - Extremity contracture [Unknown]
  - Bladder dilatation [Unknown]
  - Umbilical cord abnormality [Unknown]
  - Premature baby [Unknown]
  - Foetal growth restriction [Unknown]
